FAERS Safety Report 18414851 (Version 1)
Quarter: 2020Q4

REPORT INFORMATION
  Report Type: Spontaneous
  Country: US (occurrence: US)
  Receive Date: 20201022
  Receipt Date: 20201022
  Transmission Date: 20210114
  Serious: No
  Sender: FDA-Public Use
  Company Number: None

PATIENT
  Age: 19 Year
  Sex: Female
  Weight: 40.5 kg

DRUGS (3)
  1. VVANYSE [Concomitant]
  2. CLINDAMYCIN AND BENZOYL PEROXIDE GEL [Suspect]
     Active Substance: BENZOYL PEROXIDE\CLINDAMYCIN
     Indication: ACNE
     Dosage: ?          QUANTITY:50 GRAMS PER JAR;?
     Route: 061
     Dates: start: 20190331, end: 20201022
  3. TYLENOL [Concomitant]
     Active Substance: ACETAMINOPHEN

REACTIONS (3)
  - Ocular hyperaemia [None]
  - Eye pruritus [None]
  - Eye swelling [None]

NARRATIVE: CASE EVENT DATE: 20201021
